FAERS Safety Report 7314206-5 (Version None)
Quarter: 2011Q1

REPORT INFORMATION
  Report Type: 
  Country: None (occurrence: None)
  Receive Date: 20110225
  Receipt Date: 20100607
  Transmission Date: 20110831
  Serious: Yes (Other)
  Sender: FDA-Public Use
  Company Number: US-MYLANLABS-2010S1010091

PATIENT
  Sex: Male

DRUGS (2)
  1. AMNESTEEM [Suspect]
     Indication: ACNE
     Dates: start: 20051101, end: 20060401
  2. ACCUTANE [Suspect]
     Indication: ACNE
     Dates: start: 20010701, end: 20020101

REACTIONS (1)
  - INFLAMMATORY BOWEL DISEASE [None]
